FAERS Safety Report 23532206 (Version 1)
Quarter: 2024Q1

REPORT INFORMATION
  Report Type: Spontaneous
  Country: KR (occurrence: KR)
  Receive Date: 20240216
  Receipt Date: 20240216
  Transmission Date: 20240410
  Serious: Yes (Other)
  Sender: FDA-Public Use
  Company Number: KR-OPELLA-2024OHG004778

PATIENT
  Age: 52 Year
  Sex: Female

DRUGS (5)
  1. XYZAL [Suspect]
     Active Substance: LEVOCETIRIZINE DIHYDROCHLORIDE
     Indication: Dermatitis contact
     Dosage: 0.5 DOSAGE FORM, 2X/DAY (BID)
     Route: 065
     Dates: start: 20210313
  2. CORTIZONE 10 EASY RELIEF [Suspect]
     Active Substance: HYDROCORTISONE
     Indication: Dermatitis contact
     Dosage: 0.011 DOSAGE FORM, ONCE DAILY (QD),
     Route: 065
     Dates: start: 20210313
  3. METHYLPREDNISOLONE [Suspect]
     Active Substance: METHYLPREDNISOLONE
     Indication: Dermatitis contact
     Dosage: 1 DOSAGE FORM, ONCE DAILY (QD)
     Route: 065
     Dates: start: 20210313
  4. LAFUTIDINE [Suspect]
     Active Substance: LAFUTIDINE
     Indication: Dermatitis contact
     Dosage: 1 DOSAGE FORM, ONCE DAILY (QD)
     Route: 065
     Dates: start: 20210313
  5. SALICYLATE [Suspect]
     Active Substance: SALICYLIC ACID
     Indication: Dermatitis contact
     Dosage: 1 DOSAGE FORM TWICE A DAY.
     Route: 065
     Dates: start: 20210313

REACTIONS (1)
  - Uterine haemorrhage [Unknown]
